FAERS Safety Report 14284749 (Version 2)
Quarter: 2018Q1

REPORT INFORMATION
  Report Type: Report from Study
  Country: JP (occurrence: JP)
  Receive Date: 20171214
  Receipt Date: 20180304
  Transmission Date: 20180509
  Serious: Yes (Other)
  Sender: FDA-Public Use
  Company Number: JP-AMGEN-JPNNI2017184680

PATIENT
  Age: 56 Year
  Sex: Female
  Weight: 58 kg

DRUGS (12)
  1. PEGFILGRASTIM [Suspect]
     Active Substance: PEGFILGRASTIM
     Dosage: 3.6 MG, UNK
     Route: 058
     Dates: start: 20161028, end: 20161028
  2. PEGFILGRASTIM [Suspect]
     Active Substance: PEGFILGRASTIM
     Dosage: 3.6 MG, UNK
     Route: 058
     Dates: start: 20161118, end: 20161118
  3. EPIRUBICIN HYDROCHLORIDE. [Concomitant]
     Active Substance: EPIRUBICIN HYDROCHLORIDE
     Dosage: 90 MG/M2, UNK
     Route: 041
     Dates: start: 20161025, end: 20161025
  4. CYCLOPHOSPHAMIDE MONOHYDRATE [Concomitant]
     Active Substance: CYCLOPHOSPHAMIDE
     Indication: BREAST CANCER
     Dosage: UNK
     Route: 041
     Dates: start: 20161010, end: 20161010
  5. EPIRUBICIN HYDROCHLORIDE. [Concomitant]
     Active Substance: EPIRUBICIN HYDROCHLORIDE
     Indication: BREAST CANCER
     Dosage: 90 MG/M2, UNK
     Route: 041
     Dates: start: 20161010, end: 20161010
  6. CYCLOPHOSPHAMIDE MONOHYDRATE [Concomitant]
     Active Substance: CYCLOPHOSPHAMIDE
     Dosage: UNK
     Route: 041
     Dates: start: 20161025, end: 20161025
  7. CYCLOPHOSPHAMIDE MONOHYDRATE [Concomitant]
     Active Substance: CYCLOPHOSPHAMIDE
     Dosage: UNK
     Route: 041
     Dates: start: 20161129, end: 20161129
  8. PEGFILGRASTIM [Suspect]
     Active Substance: PEGFILGRASTIM
     Indication: PROPHYLAXIS
     Dosage: 3.6 MG, UNK
     Route: 058
     Dates: start: 20161011, end: 20161011
  9. PEGFILGRASTIM [Suspect]
     Active Substance: PEGFILGRASTIM
     Dosage: 3.6 MG, UNK
     Route: 058
     Dates: start: 20161202, end: 20161202
  10. EPIRUBICIN HYDROCHLORIDE. [Concomitant]
     Active Substance: EPIRUBICIN HYDROCHLORIDE
     Dosage: 90 MG/M2, UNK
     Route: 041
     Dates: start: 20161129, end: 20161129
  11. CYCLOPHOSPHAMIDE MONOHYDRATE [Concomitant]
     Active Substance: CYCLOPHOSPHAMIDE
     Dosage: UNK
     Route: 041
     Dates: start: 20161115, end: 20161115
  12. EPIRUBICIN HYDROCHLORIDE. [Concomitant]
     Active Substance: EPIRUBICIN HYDROCHLORIDE
     Dosage: 90 MG/M2, UNK
     Route: 041
     Dates: start: 20161115, end: 20161115

REACTIONS (2)
  - Blast cell count increased [Recovered/Resolved]
  - Chemotherapy [Unknown]

NARRATIVE: CASE EVENT DATE: 20161108
